FAERS Safety Report 10183979 (Version 1)
Quarter: 2014Q2

REPORT INFORMATION
  Report Type: Spontaneous
  Country: US (occurrence: US)
  Receive Date: 20140520
  Receipt Date: 20140520
  Transmission Date: 20141212
  Serious: No
  Sender: FDA-Public Use
  Company Number: US-MYLANLABS-2013S1009992

PATIENT
  Age: 49 Year
  Sex: Female
  Weight: 65.77 kg

DRUGS (3)
  1. ESTRADIOL TABLETS, USP [Suspect]
     Indication: HORMONE REPLACEMENT THERAPY
     Route: 048
     Dates: start: 2010
  2. ESTRADIOL TABLETS, USP [Suspect]
     Indication: HORMONE REPLACEMENT THERAPY
     Route: 048
  3. VIVELLE DOT [Concomitant]

REACTIONS (3)
  - Hypersensitivity [Not Recovered/Not Resolved]
  - Dysphagia [Not Recovered/Not Resolved]
  - Urticaria [Not Recovered/Not Resolved]
